FAERS Safety Report 4349925-6 (Version None)
Quarter: 2004Q2

REPORT INFORMATION
  Report Type: 
  Country: None (occurrence: None)
  Receive Date: 20040428
  Receipt Date: 20040428
  Transmission Date: 20050107
  Serious: Yes (Hospitalization)
  Sender: FDA-Public Use
  Company Number: None

PATIENT
  Sex: Male

DRUGS (12)
  1. AMIODARONE HCL [Suspect]
     Indication: ATRIAL FIBRILLATION
     Dosage: 200 MG DAILY ORAL
     Route: 048
     Dates: start: 20040120, end: 20040211
  2. FERROUS SULFATE TAB [Concomitant]
  3. FINASTERIDE [Concomitant]
  4. FORMOTEROL [Concomitant]
  5. NIFEDIPINE [Concomitant]
  6. OCUVITE [Concomitant]
  7. PSYLLIUM [Concomitant]
  8. OMEPRAZOLE [Concomitant]
  9. SALSALATE [Concomitant]
  10. TAMSULOSIN [Concomitant]
  11. VALSARTAN [Concomitant]
  12. VITAMIN E [Concomitant]

REACTIONS (1)
  - DYSPNOEA [None]
